FAERS Safety Report 8822919 (Version 2)
Quarter: 2012Q4

REPORT INFORMATION
  Report Type: Report from Study
  Country: CA (occurrence: CA)
  Receive Date: 20121003
  Receipt Date: 20121008
  Transmission Date: 20130627
  Serious: Yes (Other)
  Sender: FDA-Public Use
  Company Number: PHHY2012CA084938

PATIENT
  Sex: Female

DRUGS (2)
  1. CLOZARIL [Suspect]
     Indication: SCHIZOPHRENIA
     Dosage: 250 mg, QHS
     Route: 048
     Dates: start: 200802, end: 20121001
  2. CLOPIXOL [Concomitant]

REACTIONS (3)
  - Bruxism [Recovering/Resolving]
  - Tooth loss [Unknown]
  - Myalgia [Unknown]
